FAERS Safety Report 11129842 (Version 1)
Quarter: 2015Q2

REPORT INFORMATION
  Report Type: Spontaneous
  Country: US (occurrence: None)
  Receive Date: 20150520
  Receipt Date: 20150520
  Transmission Date: 20150821
  Serious: Yes (Disabling)
  Sender: FDA-Public Use
  Company Number: None

PATIENT
  Age: 61 Year
  Sex: Female
  Weight: 70.31 kg

DRUGS (3)
  1. VSL#3 [Concomitant]
     Active Substance: PROBIOTICS NOS
  2. CLINDAMYCIN [Suspect]
     Active Substance: CLINDAMYCIN\CLINDAMYCIN PHOSPHATE
     Dosage: 3 PILLS A DAY ?
     Route: 048
  3. SACCHROMYCES BOULARDI [Concomitant]

REACTIONS (3)
  - Diarrhoea haemorrhagic [None]
  - Diarrhoea [None]
  - Clostridium difficile infection [None]
